FAERS Safety Report 10172851 (Version 2)
Quarter: 2014Q2

REPORT INFORMATION
  Report Type: Spontaneous
  Country: FR (occurrence: FR)
  Receive Date: 20140515
  Receipt Date: 20140604
  Transmission Date: 20141212
  Serious: Yes (Hospitalization, Disabling)
  Sender: FDA-Public Use
  Company Number: FR-GLAXOSMITHKLINE-B0992124A

PATIENT
  Sex: Male

DRUGS (14)
  1. SERETIDE [Suspect]
     Indication: CHRONIC OBSTRUCTIVE PULMONARY DISEASE
     Route: 055
     Dates: start: 201001, end: 20140407
  2. NORVIR [Suspect]
     Indication: HIV INFECTION
     Dosage: 100MG TWICE PER DAY
     Route: 048
     Dates: start: 201101, end: 201206
  3. KALETRA [Suspect]
     Route: 048
     Dates: start: 201305, end: 201307
  4. PREZISTA [Suspect]
     Indication: HIV INFECTION
     Dosage: 600MG TWICE PER DAY
     Route: 065
     Dates: start: 201101, end: 201206
  5. CELSENTRI [Concomitant]
     Indication: HIV INFECTION
     Dosage: 300MG TWICE PER DAY
     Route: 065
     Dates: start: 201305, end: 201307
  6. HYDROCORTISONE [Concomitant]
     Indication: PRODUCT USED FOR UNKNOWN INDICATION
     Dosage: 20MG TWICE PER DAY
  7. CACIT D3 [Concomitant]
     Indication: PRODUCT USED FOR UNKNOWN INDICATION
     Dosage: 1G PER DAY
  8. INEXIUM [Concomitant]
     Indication: PRODUCT USED FOR UNKNOWN INDICATION
     Dosage: 40MG PER DAY
  9. TIVICAY [Concomitant]
     Indication: HIV INFECTION
     Route: 065
     Dates: start: 201307, end: 20130802
  10. COUMADINE [Concomitant]
     Indication: PULMONARY EMBOLISM
     Dosage: 5MG FOUR TIMES PER DAY
     Route: 065
  11. TRUVADA [Concomitant]
     Indication: HIV INFECTION
     Route: 065
     Dates: start: 201101, end: 201206
  12. INTELENCE [Concomitant]
     Dates: start: 201206, end: 201305
  13. ISENTRESS [Concomitant]
     Dates: start: 201206, end: 201305
  14. FUZEON [Concomitant]
     Indication: HIV INFECTION
     Route: 065
     Dates: start: 201305, end: 201307

REACTIONS (11)
  - Cushing^s syndrome [Not Recovered/Not Resolved]
  - Adrenal insufficiency [Not Recovered/Not Resolved]
  - Vomiting [Recovered/Resolved]
  - Drug interaction [Unknown]
  - Asthenia [Unknown]
  - Skin striae [Unknown]
  - Irritability [Unknown]
  - Hirsutism [Unknown]
  - Amyotrophy [Unknown]
  - Depression [Unknown]
  - Fat redistribution [Unknown]
